FAERS Safety Report 5307363-3 (Version None)
Quarter: 2007Q1

REPORT INFORMATION
  Report Type: 
  Country: None (occurrence: None)
  Receive Date: 20070201
  Receipt Date: 20061211
  Transmission Date: 20070707
  Serious: No
  Sender: FDA-Public Use
  Company Number: 2006PV026674

PATIENT
  Age: 62 Year
  Sex: Female
  Weight: 111.1313 kg

DRUGS (12)
  1. BYETTA [Suspect]
     Indication: DIABETES MELLITUS NON-INSULIN-DEPENDENT
     Dosage: 5 MCG; BID
     Dates: start: 20061101, end: 20061208
  2. GLUCOTROL [Concomitant]
  3. LANTUS [Concomitant]
  4. NOVOLOG [Concomitant]
  5. ATENOLOL [Concomitant]
  6. ASPIRIN [Concomitant]
  7. LOVASTATIN [Concomitant]
  8. RANITIDINE [Concomitant]
  9. FUROSEMIDE [Concomitant]
  10. POTASSIUM ACETATE [Concomitant]
  11. ENALAPRIL [Concomitant]
  12. ACTOS [Concomitant]

REACTIONS (9)
  - ARTHRALGIA [None]
  - BLOOD GLUCOSE DECREASED [None]
  - BLOOD GLUCOSE INCREASED [None]
  - CHEST PAIN [None]
  - CONDITION AGGRAVATED [None]
  - HEART RATE [None]
  - NAUSEA [None]
  - TREMOR [None]
  - WEIGHT DECREASED [None]
